FAERS Safety Report 14820366 (Version 1)
Quarter: 2018Q2

REPORT INFORMATION
  Report Type: Spontaneous
  Country: US (occurrence: US)
  Receive Date: 20180427
  Receipt Date: 20180427
  Transmission Date: 20180711
  Serious: No
  Sender: FDA-Public Use
  Company Number: US-BAUSCH-BL-2017-018266

PATIENT
  Age: 56 Year
  Sex: Male
  Weight: 81.72 kg

DRUGS (1)
  1. ALDARA [Suspect]
     Active Substance: IMIQUIMOD
     Indication: BASAL CELL CARCINOMA
     Dosage: 5 DAYS PER WEEK
     Route: 061
     Dates: start: 201705

REACTIONS (1)
  - Rash [Not Recovered/Not Resolved]

NARRATIVE: CASE EVENT DATE: 201705
